FAERS Safety Report 23409002 (Version 1)
Quarter: 2024Q1

REPORT INFORMATION
  Report Type: Spontaneous
  Country: US (occurrence: None)
  Receive Date: 20240115
  Receipt Date: 20240115
  Transmission Date: 20240409
  Serious: Yes (Other)
  Sender: FDA-Public Use
  Company Number: None

PATIENT
  Age: 4 Year
  Sex: Female
  Weight: 17.1 kg

DRUGS (1)
  1. MONTELUKAST [Suspect]
     Active Substance: MONTELUKAST SODIUM
     Indication: Cough variant asthma
     Dates: start: 20230901, end: 20240109

REACTIONS (9)
  - Abnormal behaviour [None]
  - Hypersensitivity [None]
  - Homicidal ideation [None]
  - Depressed mood [None]
  - Malaise [None]
  - Impaired quality of life [None]
  - Nightmare [None]
  - Chronic cheek biting [None]
  - Discomfort [None]

NARRATIVE: CASE EVENT DATE: 20240102
